FAERS Safety Report 14123371 (Version 4)
Quarter: 2018Q3

REPORT INFORMATION
  Report Type: Spontaneous
  Country: AU (occurrence: AU)
  Receive Date: 20171025
  Receipt Date: 20180921
  Transmission Date: 20181010
  Serious: Yes (Hospitalization)
  Sender: FDA-Public Use
  Company Number: AU-ROCHE-2011936

PATIENT
  Sex: Female

DRUGS (1)
  1. XOLAIR [Suspect]
     Active Substance: OMALIZUMAB
     Indication: ASTHMA
     Route: 065

REACTIONS (5)
  - Hypersensitivity [Recovered/Resolved]
  - Weight decreased [Unknown]
  - Anaphylactic reaction [Recovered/Resolved]
  - Paraesthesia oral [Unknown]
  - Urticaria [Unknown]
